FAERS Safety Report 10063777 (Version 3)
Quarter: 2015Q2

REPORT INFORMATION
  Report Type: Spontaneous
  Country: BR (occurrence: BR)
  Receive Date: 20140408
  Receipt Date: 20150515
  Transmission Date: 20150821
  Serious: Yes (Other)
  Sender: FDA-Public Use
  Company Number: BR-ROCHE-1374848

PATIENT
  Age: 57 Year
  Sex: Female
  Weight: 80 kg

DRUGS (8)
  1. METFORMIN [Concomitant]
     Active Substance: METFORMIN HYDROCHLORIDE
     Route: 065
  2. CARBAMAZEPINE. [Concomitant]
     Active Substance: CARBAMAZEPINE
     Route: 065
  3. CELECOXIB. [Concomitant]
     Active Substance: CELECOXIB
     Route: 048
  4. NPH HUMAN INSULIN [Concomitant]
     Active Substance: INSULIN HUMAN
     Dosage: ADMINISTRATION BREAKFAST AND BEFORE GOING TO SLEEP
     Route: 065
  5. ACARBOSE. [Concomitant]
     Active Substance: ACARBOSE
     Route: 065
  6. ACTEMRA [Suspect]
     Active Substance: TOCILIZUMAB
     Indication: RHEUMATOID ARTHRITIS
     Dosage: 80 MG (LOT: B1018B02 AND B1009B06)?200 MG (LOT: B1019B07U1)
     Route: 042
     Dates: start: 20130503, end: 20130802
  7. PREDNISONE. [Concomitant]
     Active Substance: PREDNISONE
     Route: 048
  8. GLICLAZIDE [Concomitant]
     Active Substance: GLICLAZIDE
     Route: 065

REACTIONS (13)
  - Oral herpes [Recovered/Resolved]
  - Pain [Recovered/Resolved]
  - Stomatitis [Recovered/Resolved]
  - Cough [Recovering/Resolving]
  - Dysphagia [Recovered/Resolved]
  - Herpes zoster [Recovered/Resolved]
  - Oedema peripheral [Recovered/Resolved]
  - Tremor [Recovering/Resolving]
  - Chest pain [Recovered/Resolved]
  - Erythema [Recovered/Resolved]
  - Muscle spasms [Recovered/Resolved]
  - Chest pain [Recovered/Resolved]
  - Hypotension [Recovering/Resolving]

NARRATIVE: CASE EVENT DATE: 20130802
